FAERS Safety Report 6107477-4 (Version None)
Quarter: 2009Q1

REPORT INFORMATION
  Report Type: 
  Country: None (occurrence: None)
  Receive Date: 20090303
  Receipt Date: 20090105
  Transmission Date: 20090719
  Serious: Yes (Hospitalization)
  Sender: FDA-Public Use
  Company Number: 2009PV000012

PATIENT
  Age: 20 Year
  Sex: Female

DRUGS (1)
  1. DEPOCYT [Suspect]
     Indication: LEUKAEMIA
     Dosage: 50 MG; 1X;INTH
     Route: 037
     Dates: start: 20081001, end: 20081001

REACTIONS (5)
  - DISEASE PROGRESSION [None]
  - HEADACHE [None]
  - INTRACRANIAL PRESSURE INCREASED [None]
  - PAPILLOEDEMA [None]
  - VISION BLURRED [None]
